FAERS Safety Report 16070359 (Version 9)
Quarter: 2019Q4

REPORT INFORMATION
  Report Type: Report from Study
  Country: None (occurrence: CH)
  Receive Date: 20190314
  Receipt Date: 20191221
  Transmission Date: 20200122
  Serious: Yes (Death, Hospitalization, Other)
  Sender: FDA-Public Use
  Company Number: CH-ABBVIE-19K-151-2609940-00

PATIENT
  Age: 68 Year
  Sex: Male
  Weight: 57.5 kg

DRUGS (43)
  1. VENCLYXTO [Suspect]
     Active Substance: VENETOCLAX
     Route: 048
     Dates: start: 20181106, end: 20181112
  2. ATORVASTATIN [Concomitant]
     Active Substance: ATORVASTATIN
     Indication: DYSLIPIDAEMIA
     Route: 048
     Dates: start: 20181005, end: 20190325
  3. ENSURE [Concomitant]
     Active Substance: AMINO ACIDS\DEXTROSE\ELECTROLYTES NOS\SOYBEAN OIL\VITAMINS
     Indication: VITAMIN SUPPLEMENTATION
     Route: 048
     Dates: start: 20190312, end: 20190325
  4. BACTRIM [Concomitant]
     Active Substance: SULFAMETHOXAZOLE\TRIMETHOPRIM
     Indication: ANTIFUNGAL PROPHYLAXIS
     Dosage: 800 MG / 160 MG
     Route: 048
     Dates: start: 20160120, end: 20190327
  5. SUPRADYN [Concomitant]
     Active Substance: ASCORBIC ACID\MINERALS\VITAMINS
     Indication: VITAMIN SUPPLEMENTATION
     Route: 048
     Dates: start: 20190316, end: 20190328
  6. COLISTIN [Concomitant]
     Active Substance: COLISTIN
     Indication: INFECTION PROPHYLAXIS
     Route: 042
     Dates: start: 20181211, end: 20190328
  7. VENCLYXTO [Suspect]
     Active Substance: VENETOCLAX
     Route: 048
     Dates: start: 20181030, end: 20181105
  8. PANTOZOL [Concomitant]
     Active Substance: PANTOPRAZOLE SODIUM
     Indication: PROPHYLAXIS OF NAUSEA AND VOMITING
  9. VALVERDE [Concomitant]
     Active Substance: HERBALS
     Dosage: AS NEEDED
     Route: 048
     Dates: start: 20190324, end: 20190324
  10. FILGRASTIM [Concomitant]
     Active Substance: FILGRASTIM
     Indication: NEUTROPENIA
     Dosage: AS NEEDED
     Route: 058
     Dates: start: 20190313, end: 20190313
  11. VENCLYXTO [Suspect]
     Active Substance: VENETOCLAX
     Route: 048
     Dates: start: 20181113, end: 20181119
  12. TORASEMID [Concomitant]
     Active Substance: TORSEMIDE
     Indication: OEDEMA
     Route: 048
     Dates: start: 20190322, end: 20190326
  13. PARAGOL [Concomitant]
     Active Substance: MINERAL OIL\PHENOLPHTHALEIN
     Indication: LAXATIVE SUPPORTIVE CARE
     Dosage: AS NEEDED
     Route: 048
     Dates: start: 20190319, end: 20190319
  14. FILGRASTIM [Concomitant]
     Active Substance: FILGRASTIM
     Dosage: AS NEEDED
     Route: 058
     Dates: start: 20190320, end: 20190320
  15. TRANEXAM [Concomitant]
     Active Substance: TRANEXAMIC ACID
     Indication: HAEMORRHAGE
     Dosage: AS NEEDED
     Route: 042
     Dates: start: 20190312, end: 20190312
  16. MEROPENEM. [Concomitant]
     Active Substance: MEROPENEM
     Indication: PNEUMONIA
     Route: 042
     Dates: start: 20190325, end: 20190330
  17. FLUIMUCIL [Concomitant]
     Active Substance: ACETYLCYSTEINE
     Indication: PNEUMONIA
     Route: 048
     Dates: start: 20190320, end: 20190328
  18. TIENAM [Concomitant]
     Active Substance: CILASTATIN SODIUM\IMIPENEM
     Indication: PRODUCT USED FOR UNKNOWN INDICATION
     Route: 048
     Dates: start: 20101005, end: 20181024
  19. VENCLYXTO [Suspect]
     Active Substance: VENETOCLAX
     Route: 048
     Dates: start: 20181120, end: 20190227
  20. VENCLYXTO [Suspect]
     Active Substance: VENETOCLAX
     Route: 048
     Dates: start: 2019
  21. VALVERDE [Concomitant]
     Active Substance: HERBALS
     Dosage: AS NEEDED
     Route: 048
     Dates: start: 20190323, end: 20190323
  22. FILGRASTIM [Concomitant]
     Active Substance: FILGRASTIM
     Dosage: AS NEEDED
     Route: 058
     Dates: start: 20190321, end: 20190321
  23. PARAGOL [Concomitant]
     Active Substance: MINERAL OIL\PHENOLPHTHALEIN
     Dosage: AS NEEDED
     Route: 048
     Dates: start: 20190323, end: 20190323
  24. DAFALGAN [Concomitant]
     Active Substance: ACETAMINOPHEN
     Indication: PAIN
     Route: 048
     Dates: start: 20190318, end: 20190327
  25. FILGRASTIM [Concomitant]
     Active Substance: FILGRASTIM
     Dosage: AS NEEDED
     Route: 058
     Dates: start: 20190315, end: 20190315
  26. TOBRAMYCIN. [Concomitant]
     Active Substance: TOBRAMYCIN
     Indication: PRODUCT USED FOR UNKNOWN INDICATION
     Route: 048
     Dates: start: 20181005, end: 20181023
  27. PARAGOL [Concomitant]
     Active Substance: MINERAL OIL\PHENOLPHTHALEIN
     Dosage: AS NEEDED
     Route: 048
     Dates: start: 20190324, end: 20190324
  28. PARAGOL [Concomitant]
     Active Substance: MINERAL OIL\PHENOLPHTHALEIN
     Dosage: AS NEEDED
     Route: 048
     Dates: start: 20190327, end: 20190327
  29. NERVIFENE [Concomitant]
     Active Substance: CHLORAL HYDRATE
     Indication: AGITATION
     Route: 048
     Dates: end: 20190324
  30. MORPHINE [Concomitant]
     Active Substance: MORPHINE
     Indication: PAIN
     Route: 042
     Dates: start: 20190329
  31. TENORMIN [Concomitant]
     Active Substance: ATENOLOL
     Indication: MYOCARDIAL ISCHAEMIA
     Route: 048
     Dates: start: 20151126, end: 20190325
  32. PANTOZOL [Concomitant]
     Active Substance: PANTOPRAZOLE SODIUM
     Indication: PROPHYLAXIS OF NAUSEA AND VOMITING
     Route: 048
     Dates: start: 20151126, end: 20190328
  33. ZYLORIC [Concomitant]
     Active Substance: ALLOPURINOL
     Indication: PROPHYLAXIS
     Route: 048
     Dates: start: 20181020, end: 20190328
  34. LYRICA [Concomitant]
     Active Substance: PREGABALIN
     Indication: NEUROPATHY PERIPHERAL
     Route: 048
     Dates: start: 20180920, end: 20190329
  35. TAZOBAC [Concomitant]
     Active Substance: PIPERACILLIN SODIUM\TAZOBACTAM SODIUM
     Indication: PNEUMONIA
     Route: 042
     Dates: start: 20190318, end: 20190325
  36. ATROVENT [Concomitant]
     Active Substance: IPRATROPIUM BROMIDE
     Indication: CHRONIC OBSTRUCTIVE PULMONARY DISEASE
     Route: 055
     Dates: start: 20190318, end: 20190328
  37. VENTOLIN [Concomitant]
     Active Substance: ALBUTEROL SULFATE
     Indication: CHRONIC OBSTRUCTIVE PULMONARY DISEASE
     Route: 055
     Dates: start: 20190318, end: 20190328
  38. VENCLYXTO [Suspect]
     Active Substance: VENETOCLAX
     Indication: CHRONIC LYMPHOCYTIC LEUKAEMIA
     Route: 048
     Dates: start: 20181023, end: 20181029
  39. VALVERDE [Concomitant]
     Active Substance: HERBALS
     Indication: LAXATIVE SUPPORTIVE CARE
     Dosage: AS NEEDED
     Route: 048
     Dates: start: 20190319, end: 20190319
  40. VALVERDE [Concomitant]
     Active Substance: HERBALS
     Dosage: AS NEEDED
     Route: 048
     Dates: start: 20190327, end: 20190327
  41. MYCOSTATIN [Concomitant]
     Active Substance: NYSTATIN
     Indication: PROPHYLAXIS
     Route: 002
     Dates: start: 20181106, end: 20190328
  42. VALACICLOVIR [Concomitant]
     Active Substance: VALACYCLOVIR HYDROCHLORIDE
     Indication: ANTIVIRAL PROPHYLAXIS
     Route: 048
     Dates: start: 20160120, end: 20190328
  43. BUSCOPAN [Concomitant]
     Active Substance: BUTYLSCOPOLAMINE BROMIDE
     Indication: DYSPNOEA
     Route: 042
     Dates: start: 20190328

REACTIONS (19)
  - Bronchiectasis [Unknown]
  - Lymphoma [Fatal]
  - Cough [Recovered/Resolved]
  - Lung adenocarcinoma [Not Recovered/Not Resolved]
  - Richter^s syndrome [Unknown]
  - Tongue discolouration [Recovered/Resolved]
  - Pallor [Recovered/Resolved]
  - Haemorrhage [Not Recovered/Not Resolved]
  - Pain [Recovered/Resolved]
  - Diarrhoea [Recovered/Resolved]
  - Pain [Unknown]
  - Splenomegaly [Unknown]
  - Nodule [Recovered/Resolved]
  - Dyspnoea [Unknown]
  - Fatigue [Recovered/Resolved]
  - Chronic lymphocytic leukaemia [Fatal]
  - Thoracotomy [Unknown]
  - Fatigue [Recovered/Resolved]
  - Fatigue [Recovered/Resolved]

NARRATIVE: CASE EVENT DATE: 20181106
